FAERS Safety Report 15484718 (Version 1)
Quarter: 2018Q4

REPORT INFORMATION
  Report Type: Spontaneous
  Country: GB (occurrence: GB)
  Receive Date: 20181010
  Receipt Date: 20181010
  Transmission Date: 20190205
  Serious: Yes (Hospitalization, Other)
  Sender: FDA-Public Use
  Company Number: GB-PFIZER INC-2018405494

PATIENT
  Age: 28 Year
  Sex: Male

DRUGS (3)
  1. ETHAMBUTOL [Suspect]
     Active Substance: ETHAMBUTOL HYDROCHLORIDE
     Indication: PULMONARY TUBERCULOSIS
     Dosage: 700 MG, DAILY
     Dates: start: 196711
  2. GENTAMICIN SULFATE. [Suspect]
     Active Substance: GENTAMICIN SULFATE
     Indication: PULMONARY TUBERCULOSIS
     Dosage: 120 MG, DAILY
     Dates: start: 196711
  3. DOXYCYCLINE MONOHYDRATE [Suspect]
     Active Substance: DOXYCYCLINE
     Indication: PULMONARY TUBERCULOSIS
     Dosage: 400 MG, DAILY
     Dates: start: 196711

REACTIONS (1)
  - Hyperaldosteronism [Not Recovered/Not Resolved]
